FAERS Safety Report 9752006 (Version 1)
Quarter: 2013Q4

REPORT INFORMATION
  Report Type: Spontaneous
  Country: IR (occurrence: None)
  Receive Date: 20131211
  Receipt Date: 20131211
  Transmission Date: 20140711
  Serious: Yes (Hospitalization)
  Sender: FDA-Public Use
  Company Number: 2060458

PATIENT
  Age: 17 Year
  Sex: Male
  Weight: 82 kg

DRUGS (6)
  1. ATRACURIUM BESILATE [Suspect]
     Indication: GENERAL ANAESTHESIA
  2. FENTANYL [Suspect]
     Indication: PREMEDICATION
     Dosage: 100 UG/KG MICROGRAM(S)/KILOGRAM (UNKNOWN) INTRAVENOUS (NOT OTHERWISE SPECIFIED)
     Route: 042
  3. THIOPENTAL [Suspect]
     Indication: GENERAL ANAESTHESIA
  4. HALOTAN [Suspect]
     Indication: MAINTENANCE OF ANAESTHESIA
  5. NITROUS OXIDE [Suspect]
     Indication: MAINTENANCE OF ANAESTHESIA
  6. LACTATED RINGER [Concomitant]

REACTIONS (6)
  - Pulmonary oedema [None]
  - Laryngospasm [None]
  - Agitation [None]
  - Respiratory distress [None]
  - Tachypnoea [None]
  - Cyanosis [None]
